FAERS Safety Report 7414320-X (Version None)
Quarter: 2011Q2

REPORT INFORMATION
  Report Type: 
  Country: None (occurrence: None)
  Receive Date: 20110414
  Receipt Date: 20110411
  Transmission Date: 20111010
  Serious: Yes (Death, Other)
  Sender: FDA-Public Use
  Company Number: US-PFIZER INC-2011024789

PATIENT
  Sex: Female

DRUGS (1)
  1. CHANTIX [Suspect]
     Indication: SMOKING CESSATION THERAPY
     Dosage: UNK
     Dates: start: 20091024, end: 20091101

REACTIONS (7)
  - HALLUCINATION, VISUAL [None]
  - COMPLETED SUICIDE [None]
  - MANIA [None]
  - HALLUCINATION, AUDITORY [None]
  - AGGRESSION [None]
  - ANXIETY [None]
  - DEPRESSION [None]
